FAERS Safety Report 9248717 (Version 2)
Quarter: 2013Q2

REPORT INFORMATION
  Report Type: Spontaneous
  Country: US (occurrence: US)
  Receive Date: 20130423
  Receipt Date: 20130508
  Transmission Date: 20140414
  Serious: Yes (Other)
  Sender: FDA-Public Use
  Company Number: US-SANOFI-AVENTIS-2013SA041209

PATIENT
  Age: 52 Year
  Sex: Female
  Weight: 61.23 kg

DRUGS (8)
  1. AUBAGIO [Suspect]
     Indication: MULTIPLE SCLEROSIS
     Route: 048
     Dates: start: 201302, end: 20130419
  2. NEURONTIN [Concomitant]
     Indication: PAIN
  3. NALTREXONE [Concomitant]
     Indication: MULTIPLE SCLEROSIS
  4. BACLOFEN [Concomitant]
     Indication: MUSCLE SPASMS
  5. PROZAC [Concomitant]
     Indication: DEPRESSION
     Dosage: 200 MG AT NIGHT AND 40 MG AT MORNING
  6. VITAMIN D [Concomitant]
     Indication: MULTIPLE SCLEROSIS
     Dosage: 50M/1.25 MG
  7. OXYBUTYNIN [Concomitant]
     Indication: BLADDER SPASM
  8. DIOVANE [Concomitant]
     Indication: HYPERTENSION
     Dosage: 160/25 MG DAILY

REACTIONS (1)
  - Convulsion [Recovered/Resolved]
